FAERS Safety Report 25864771 (Version 1)
Quarter: 2025Q3

REPORT INFORMATION
  Report Type: Report from Study
  Country: US (occurrence: US)
  Receive Date: 20250930
  Receipt Date: 20250930
  Transmission Date: 20251021
  Serious: Yes (Life-Threatening)
  Sender: GRIFOLS
  Company Number: US-IGSA-BIG0038349

PATIENT
  Age: 68 Year
  Sex: Male
  Weight: 76.2 kg

DRUGS (1)
  1. PROLASTIN-C LIQUID [Suspect]
     Active Substance: .ALPHA.1-PROTEINASE INHIBITOR HUMAN
     Indication: Alpha-1 antitrypsin deficiency
     Dosage: 60 UNKNOWN, Q.WK.
     Route: 042

REACTIONS (3)
  - Chills [Recovered/Resolved]
  - Dyspnoea [Recovered/Resolved]
  - Toxicity to various agents [Recovered/Resolved]

NARRATIVE: CASE EVENT DATE: 20250921
